FAERS Safety Report 20092879 (Version 1)
Quarter: 2021Q4

REPORT INFORMATION
  Report Type: Spontaneous
  Country: US (occurrence: US)
  Receive Date: 20211120
  Receipt Date: 20211120
  Transmission Date: 20220304
  Serious: Yes (Life-Threatening, Hospitalization)
  Sender: FDA-Public Use
  Company Number: US-JNJFOC-20211118480

PATIENT
  Age: 54 Year
  Sex: Female
  Weight: 55 kg

DRUGS (5)
  1. TYLENOL [Suspect]
     Active Substance: ACETAMINOPHEN
     Indication: Accidental overdose
     Dosage: UNKNOWN DOSE
     Route: 048
     Dates: start: 2000
  2. VICODIN [Suspect]
     Active Substance: ACETAMINOPHEN\HYDROCODONE BITARTRATE
     Indication: Accidental overdose
     Dosage: ACETAMINOPHEN 500 MG/HYDROCODONE BITARTRATE 5 MG
     Route: 048
     Dates: start: 2000
  3. TRAZODONE [Concomitant]
     Active Substance: TRAZODONE HYDROCHLORIDE
     Indication: Product used for unknown indication
     Route: 065
  4. PAXIL [Concomitant]
     Active Substance: PAROXETINE HYDROCHLORIDE
     Indication: Product used for unknown indication
     Route: 065
  5. AMBIEN [Concomitant]
     Active Substance: ZOLPIDEM TARTRATE
     Indication: Product used for unknown indication
     Route: 065

REACTIONS (8)
  - Acute hepatic failure [Unknown]
  - Accidental overdose [Unknown]
  - Acute kidney injury [Unknown]
  - Staphylococcal infection [Unknown]
  - Staphylococcal infection [Unknown]
  - Candida infection [Unknown]
  - Arrhythmia [Unknown]
  - Chest X-ray abnormal [Unknown]

NARRATIVE: CASE EVENT DATE: 20000504
